FAERS Safety Report 5989718-7 (Version None)
Quarter: 2008Q4

REPORT INFORMATION
  Report Type: 
  Country: None (occurrence: None)
  Receive Date: 20081210
  Receipt Date: 20081203
  Transmission Date: 20090506
  Serious: Yes (Hospitalization)
  Sender: FDA-Public Use
  Company Number: UA-B.I. PHARMACEUTICALS,INC./RIDGEFIELD-2008-AP-00293AP

PATIENT
  Age: 83 Year
  Sex: Female

DRUGS (4)
  1. AGRENOX [Suspect]
     Indication: MYOCARDIAL ISCHAEMIA
     Dosage: 2ANZ
     Route: 048
     Dates: start: 20081128, end: 20081130
  2. NOOZAM [Concomitant]
  3. RIBOXIN (INOSINUM) [Concomitant]
  4. METAMAX [Concomitant]

REACTIONS (1)
  - CEREBROVASCULAR ACCIDENT [None]
